FAERS Safety Report 12355702 (Version 3)
Quarter: 2016Q2

REPORT INFORMATION
  Report Type: Spontaneous
  Country: GB (occurrence: GB)
  Receive Date: 20160511
  Receipt Date: 20160621
  Transmission Date: 20160815
  Serious: Yes (Other)
  Sender: FDA-Public Use
  Company Number: GB-PFIZER INC-2016249038

PATIENT
  Age: 68 Year
  Sex: Male
  Weight: 91 kg

DRUGS (1)
  1. DEPO-MEDRONE [Suspect]
     Active Substance: METHYLPREDNISOLONE
     Indication: TENDONITIS
     Dosage: UNK
     Route: 051
     Dates: start: 20150610

REACTIONS (7)
  - Abdominal distension [Recovering/Resolving]
  - Gallbladder pain [Recovering/Resolving]
  - Asthenia [Recovering/Resolving]
  - Herpes zoster [Recovering/Resolving]
  - Folate deficiency [Recovered/Resolved]
  - Diarrhoea [Recovering/Resolving]
  - Alopecia [Recovering/Resolving]

NARRATIVE: CASE EVENT DATE: 20150610
